FAERS Safety Report 21333684 (Version 2)
Quarter: 2022Q3

REPORT INFORMATION
  Report Type: Spontaneous
  Country: CN (occurrence: CN)
  Receive Date: 20220914
  Receipt Date: 20220916
  Transmission Date: 20221027
  Serious: Yes (Death, Other)
  Sender: FDA-Public Use
  Company Number: CN-PFIZER INC-PV202200060312

PATIENT
  Age: 57 Year
  Sex: Female

DRUGS (3)
  1. FLUCONAZOLE [Suspect]
     Active Substance: FLUCONAZOLE
     Indication: Disseminated cryptococcosis
     Dosage: 400 MG, DAILY
     Route: 065
  2. FLUCONAZOLE [Suspect]
     Active Substance: FLUCONAZOLE
     Indication: Renal impairment
  3. SPORANOX [Suspect]
     Active Substance: ITRACONAZOLE
     Indication: Disseminated cryptococcosis
     Dosage: 500 MG, DAILY
     Route: 042

REACTIONS (4)
  - Drug ineffective [Fatal]
  - Cryptococcosis [Fatal]
  - Disease progression [Fatal]
  - Renal impairment [Unknown]
